FAERS Safety Report 10474472 (Version 3)
Quarter: 2014Q4

REPORT INFORMATION
  Report Type: Spontaneous
  Country: BR (occurrence: BR)
  Receive Date: 20140924
  Receipt Date: 20141030
  Transmission Date: 20150528
  Serious: Yes (Other)
  Sender: FDA-Public Use
  Company Number: BR-ELI_LILLY_AND_COMPANY-BR201409007089

PATIENT
  Age: 4 Year
  Sex: Male
  Weight: 17.9 kg

DRUGS (3)
  1. HUMALOG [Suspect]
     Active Substance: INSULIN LISPRO
     Dosage: 2.5 IU, PRN
     Route: 058
     Dates: start: 20140916
  2. HUMALOG [Suspect]
     Active Substance: INSULIN LISPRO
     Indication: DIABETES MELLITUS
     Dosage: 1 IU, PRN
     Route: 058
     Dates: start: 20140916
  3. LANTUS [Concomitant]
     Active Substance: INSULIN GLARGINE
     Dosage: 4 IU, EACH MORNING
     Route: 065

REACTIONS (1)
  - Blood glucose increased [Recovering/Resolving]

NARRATIVE: CASE EVENT DATE: 20140917
